FAERS Safety Report 25383602 (Version 5)
Quarter: 2025Q3

REPORT INFORMATION
  Report Type: Spontaneous
  Country: JP (occurrence: JP)
  Receive Date: 20250602
  Receipt Date: 20250812
  Transmission Date: 20251020
  Serious: Yes (Hospitalization, Other)
  Sender: AMGEN
  Company Number: JP-KYOWAKIRIN-2025KK007786

PATIENT
  Age: 70 Year
  Sex: Female

DRUGS (21)
  1. PEGFILGRASTIM [Suspect]
     Active Substance: PEGFILGRASTIM
     Indication: Colony stimulating factor therapy
     Route: 058
     Dates: start: 20250308, end: 20250308
  2. FILGRASTIM [Suspect]
     Active Substance: FILGRASTIM
     Indication: Neutropenia
     Route: 065
     Dates: start: 20250217
  3. FILGRASTIM [Suspect]
     Active Substance: FILGRASTIM
     Route: 065
     Dates: start: 20250505
  4. DENOSUMAB [Concomitant]
     Active Substance: DENOSUMAB
     Indication: Product used for unknown indication
     Route: 065
     Dates: start: 20250308
  5. DENOSUMAB [Concomitant]
     Active Substance: DENOSUMAB
     Route: 065
     Dates: start: 20250409
  6. DENOSUMAB [Concomitant]
     Active Substance: DENOSUMAB
     Route: 065
     Dates: start: 20250512
  7. CARBOPLATIN [Suspect]
     Active Substance: CARBOPLATIN
     Indication: Thymic carcinoma
     Route: 065
     Dates: start: 20250203
  8. CARBOPLATIN [Suspect]
     Active Substance: CARBOPLATIN
     Route: 065
     Dates: start: 20250305
  9. CARBOPLATIN [Suspect]
     Active Substance: CARBOPLATIN
     Route: 065
     Dates: start: 20250423
  10. CARBOPLATIN [Suspect]
     Active Substance: CARBOPLATIN
     Route: 065
     Dates: start: 20250521
  11. ETOPOSIDE [Suspect]
     Active Substance: ETOPOSIDE
     Indication: Thymic carcinoma
     Route: 065
     Dates: start: 20250203
  12. ETOPOSIDE [Suspect]
     Active Substance: ETOPOSIDE
     Route: 065
     Dates: start: 20250305
  13. ETOPOSIDE [Suspect]
     Active Substance: ETOPOSIDE
     Route: 065
     Dates: start: 20250423
  14. ETOPOSIDE [Suspect]
     Active Substance: ETOPOSIDE
     Route: 065
     Dates: start: 20250521
  15. LEMBOREXANT [Concomitant]
     Active Substance: LEMBOREXANT
     Indication: Product used for unknown indication
     Dosage: 5 MG, QD, BEFORE BEDTIME
     Route: 048
  16. TRAZODONE [Concomitant]
     Active Substance: TRAZODONE HYDROCHLORIDE
     Indication: Product used for unknown indication
     Dosage: 25 MG, QD, BEFORE BEDTIME
     Route: 048
  17. WARFARIN [Concomitant]
     Active Substance: WARFARIN
     Indication: Product used for unknown indication
     Dosage: 3 MG, QD, IMMEDIATELY AFTER EVENING MEAL
     Route: 048
  18. WARFARIN [Concomitant]
     Active Substance: WARFARIN
     Dosage: 1.5 DF, QD, IMMEDIATELY AFTER EVENING MEAL
     Route: 048
  19. RABEPRAZOLE SODIUM [Concomitant]
     Active Substance: RABEPRAZOLE SODIUM
     Indication: Product used for unknown indication
     Dosage: 10 MG, QD, IMMEDIATELY AFTER BREAKFAST
     Route: 048
  20. CALCIUM CARBONATE\CHOLECALCIFEROL\MAGNESIUM CARBONATE [Concomitant]
     Active Substance: CALCIUM CARBONATE\CHOLECALCIFEROL\MAGNESIUM CARBONATE
     Indication: Product used for unknown indication
     Dosage: 1 DF, QD, IMMEDIATELY AFTER BREAKFAST
     Route: 065
  21. MAGNESIUM OXIDE [Concomitant]
     Active Substance: MAGNESIUM OXIDE
     Indication: Product used for unknown indication
     Dosage: 330 MG, BID, IMMEDIATELY AFTER BREAKFAST AND EVENING MEAL

REACTIONS (3)
  - Aortic wall hypertrophy [Recovering/Resolving]
  - Aortitis [Recovered/Resolved]
  - Thymic carcinoma [Unknown]

NARRATIVE: CASE EVENT DATE: 20250319
